FAERS Safety Report 6566824-X (Version None)
Quarter: 2010Q1

REPORT INFORMATION
  Report Type: 
  Country: None (occurrence: None)
  Receive Date: 20100202
  Receipt Date: 20100127
  Transmission Date: 20100710
  Serious: Yes (Life-Threatening, Hospitalization, Other)
  Sender: FDA-Public Use
  Company Number: A0841681A

PATIENT
  Age: 43 Year
  Sex: Male

DRUGS (4)
  1. EPZICOM [Suspect]
     Indication: HIV INFECTION
     Dosage: 600MG PER DAY
     Route: 048
     Dates: start: 20090820, end: 20090904
  2. HYDROCORTISONE [Concomitant]
     Route: 048
  3. EMTRICITABINE [Concomitant]
  4. TENOFOVIR [Concomitant]

REACTIONS (10)
  - ACUTE PULMONARY OEDEMA [None]
  - BRONCHOSCOPY [None]
  - ENDOTRACHEAL INTUBATION [None]
  - HYPERSENSITIVITY [None]
  - HYPOTENSION [None]
  - LUNG INFILTRATION [None]
  - MALAISE [None]
  - PYREXIA [None]
  - RESPIRATORY DISTRESS [None]
  - WOUND INFECTION STAPHYLOCOCCAL [None]
